FAERS Safety Report 12210198 (Version 7)
Quarter: 2016Q3

REPORT INFORMATION
  Report Type: Spontaneous
  Country: US (occurrence: US)
  Receive Date: 20160325
  Receipt Date: 20160726
  Transmission Date: 20161109
  Serious: Yes (Other)
  Sender: FDA-Public Use
  Company Number: US-PFIZER INC-2016175197

PATIENT
  Age: 68 Year
  Sex: Female
  Weight: 55.78 kg

DRUGS (9)
  1. ATORVASTATIN [Concomitant]
     Active Substance: ATORVASTATIN
     Indication: BLOOD CHOLESTEROL INCREASED
     Dosage: 10MG ONCE A DAY BY MOUTH
     Route: 048
  2. LATANOPROST. [Suspect]
     Active Substance: LATANOPROST
     Dosage: UNK
  3. LATANOPROST. [Suspect]
     Active Substance: LATANOPROST
     Dosage: 1 DROP IN BOTH EYES DAILY AT BEDTIME
  4. LATANOPROST. [Suspect]
     Active Substance: LATANOPROST
     Dosage: UNK
  5. LATANOPROST. [Suspect]
     Active Substance: LATANOPROST
     Dosage: UNK
  6. LATANOPROST. [Suspect]
     Active Substance: LATANOPROST
     Dosage: ONE DROP TO RIGHT EYE THREE TIMES A DAY
     Dates: start: 20160420, end: 20160420
  7. LATANOPROST. [Suspect]
     Active Substance: LATANOPROST
     Dosage: 0.005 %, UNK (1 DROP IN EACH EYE AT BEDTIME)
     Route: 047
  8. LATANOPROST. [Suspect]
     Active Substance: LATANOPROST
     Dosage: 0.005 UNK, UNK
     Dates: start: 20160227, end: 20160228
  9. ATORVASTATIN [Concomitant]
     Active Substance: ATORVASTATIN
     Indication: BLOOD CHOLESTEROL ABNORMAL

REACTIONS (12)
  - Eye disorder [Unknown]
  - Eye pain [Not Recovered/Not Resolved]
  - Eye infection [Not Recovered/Not Resolved]
  - Vision blurred [Not Recovered/Not Resolved]
  - Product use issue [Unknown]
  - Drug intolerance [Unknown]
  - Eye swelling [Not Recovered/Not Resolved]
  - Lacrimation increased [Not Recovered/Not Resolved]
  - Exophthalmos [Unknown]
  - Blindness [Unknown]
  - Eye irritation [Recovered/Resolved]
  - Eye irritation [Not Recovered/Not Resolved]

NARRATIVE: CASE EVENT DATE: 20160210
